FAERS Safety Report 9192294 (Version 3)
Quarter: 2013Q2

REPORT INFORMATION
  Report Type: Spontaneous
  Country: FR (occurrence: None)
  Receive Date: 20130312
  Receipt Date: 20130610
  Transmission Date: 20140414
  Serious: Yes (Hospitalization)
  Sender: FDA-Public Use
  Company Number: 2013034939

PATIENT
  Age: 69 Year
  Sex: Female

DRUGS (4)
  1. PRIVIGEN (IMMUNE GLOBULIN INTRAVENOUS (HUMAN) 10% LIQUID) [Suspect]
     Indication: POLYMYOSITIS
     Dosage: 2 G/KG, NI, NI INTRAVENOUS DRIP, NI,  NI
     Route: 041
     Dates: start: 20120309
  2. METHOTREXATE (METHOTREXATE) [Concomitant]
     Dates: start: 201203
  3. LEVOTHYROX (LEVOTHYROXINE SODIUM) INFUSION [Concomitant]
  4. SPECIAFOLDINE (FOLIC ACID) [Concomitant]

REACTIONS (2)
  - Leukopenia [None]
  - Neutropenia [None]
